FAERS Safety Report 24013685 (Version 1)
Quarter: 2024Q2

REPORT INFORMATION
  Report Type: Spontaneous
  Country: US (occurrence: US)
  Receive Date: 20240626
  Receipt Date: 20240626
  Transmission Date: 20240716
  Serious: Yes (Hospitalization, Other)
  Sender: FDA-Public Use
  Company Number: US-BIOCON BIOLOGICS LIMITED-BBL2024004662

PATIENT

DRUGS (1)
  1. ADALIMUMAB [Suspect]
     Active Substance: ADALIMUMAB\ISOPROPYL ALCOHOL
     Indication: Arthritis reactive
     Dosage: UNK, QW
     Route: 065

REACTIONS (1)
  - Pleurisy [Recovered/Resolved]
